FAERS Safety Report 7408493-2 (Version None)
Quarter: 2011Q1

REPORT INFORMATION
  Report Type: 
  Country: None (occurrence: None)
  Receive Date: 20110301
  Receipt Date: 20101203
  Transmission Date: 20110831
  Serious: Yes (Hospitalization)
  Sender: FDA-Public Use
  Company Number: US-JNJFOC-20101205146

PATIENT
  Age: 51 Year
  Sex: Male

DRUGS (7)
  1. ZOFRAN [Concomitant]
  2. PAXIL [Concomitant]
  3. NADOLOL [Concomitant]
  4. PHENERGAN [Concomitant]
  5. MOTRIN [Suspect]
     Indication: PAIN IN EXTREMITY
     Dosage: 2-3 TIMES/DAY
  6. TRAZODONE (TRAZODONE) [Concomitant]
  7. CEPHALEXIN [Concomitant]

REACTIONS (1)
  - GASTRIC HAEMORRHAGE [None]
